FAERS Safety Report 26195795 (Version 1)
Quarter: 2025Q4

REPORT INFORMATION
  Report Type: Spontaneous
  Country: EU (occurrence: EU)
  Receive Date: 20251224
  Receipt Date: 20251224
  Transmission Date: 20260118
  Serious: Yes (Life-Threatening, Hospitalization)
  Sender: TEVA
  Company Number: EU-TEVA-VS-3405787

PATIENT
  Age: 35 Year
  Sex: Male

DRUGS (9)
  1. FUROSEMIDE [Suspect]
     Active Substance: FUROSEMIDE
     Indication: Cardiogenic shock
     Route: 065
     Dates: start: 2024
  2. AMIODARONE [Concomitant]
     Active Substance: AMIODARONE
     Indication: Cardiogenic shock
     Route: 065
     Dates: start: 2024
  3. HEPARIN [Suspect]
     Active Substance: HEPARIN SODIUM
     Indication: Anticoagulant therapy
     Route: 065
     Dates: end: 2024
  4. DIGOXIN [Suspect]
     Active Substance: DIGOXIN
     Indication: Cardiogenic shock
     Route: 065
     Dates: start: 2024
  5. BISOPROLOL [Suspect]
     Active Substance: BISOPROLOL
     Indication: Cardiac failure
     Route: 065
     Dates: start: 2023
  6. MILRINONE [Suspect]
     Active Substance: MILRINONE
     Indication: Cardiogenic shock
     Route: 065
     Dates: start: 2024
  7. ENALAPRIL [Concomitant]
     Active Substance: ENALAPRIL
     Indication: Drug therapy
  8. EPLERENONE [Concomitant]
     Active Substance: EPLERENONE
     Indication: Drug therapy
  9. DAPAGLIFLOZIN [Concomitant]
     Active Substance: DAPAGLIFLOZIN
     Indication: Drug therapy

REACTIONS (2)
  - Drug ineffective [Unknown]
  - Heparin-induced thrombocytopenia [Recovered/Resolved]

NARRATIVE: CASE EVENT DATE: 20240101
